FAERS Safety Report 4634106-9 (Version None)
Quarter: 2005Q2

REPORT INFORMATION
  Report Type: 
  Country: None (occurrence: None)
  Receive Date: 20050413
  Receipt Date: 20050211
  Transmission Date: 20051028
  Serious: Yes (Hospitalization, Other)
  Sender: FDA-Public Use
  Company Number: GB-GLAXOSMITHKLINE-B0371450A

PATIENT
  Age: 35 Year
  Sex: Male
  Weight: 63.6 kg

DRUGS (1)
  1. AUGMENTIN [Suspect]
     Dosage: 1.2G SEE DOSAGE TEXT
     Route: 061

REACTIONS (4)
  - ACCIDENTAL EXPOSURE [None]
  - CHEMICAL EYE INJURY [None]
  - CONJUNCTIVITIS [None]
  - PHARMACEUTICAL PRODUCT COMPLAINT [None]
